FAERS Safety Report 7637349-5 (Version None)
Quarter: 2011Q3

REPORT INFORMATION
  Report Type: 
  Country: None (occurrence: None)
  Receive Date: 20110726
  Receipt Date: 20110719
  Transmission Date: 20111222
  Serious: No
  Sender: FDA-Public Use
  Company Number: US-PFIZER INC-2011123758

PATIENT
  Sex: Male

DRUGS (1)
  1. TOVIAZ [Suspect]
     Indication: POLLAKIURIA
     Dosage: 8 MG, 1X/DAY
     Route: 048
     Dates: start: 20110603, end: 20110605

REACTIONS (7)
  - EYE IRRITATION [None]
  - MICTURITION URGENCY [None]
  - INSOMNIA [None]
  - POLLAKIURIA [None]
  - DRY MOUTH [None]
  - VISION BLURRED [None]
  - THROAT IRRITATION [None]
